FAERS Safety Report 12674077 (Version 1)
Quarter: 2016Q3

REPORT INFORMATION
  Report Type: Spontaneous
  Country: HK (occurrence: HK)
  Receive Date: 20160822
  Receipt Date: 20160822
  Transmission Date: 20161109
  Serious: Yes (Other)
  Sender: FDA-Public Use
  Company Number: HK-UNICHEM LABORATORIES LIMITED-UCM201608-000185

PATIENT
  Age: 48 Year
  Sex: Female

DRUGS (3)
  1. DIVALPROEX SODIUM. [Suspect]
     Active Substance: DIVALPROEX SODIUM
     Indication: SEIZURE
  2. TOPIRAMATE. [Suspect]
     Active Substance: TOPIRAMATE
     Indication: SEIZURE
  3. TOPIRAMATE. [Suspect]
     Active Substance: TOPIRAMATE

REACTIONS (3)
  - Drug ineffective [Unknown]
  - Toxicity to various agents [Unknown]
  - Retinitis pigmentosa [Recovering/Resolving]
